FAERS Safety Report 18587242 (Version 1)
Quarter: 2020Q4

REPORT INFORMATION
  Report Type: Spontaneous
  Country: US (occurrence: US)
  Receive Date: 20201207
  Receipt Date: 20201207
  Transmission Date: 20210114
  Serious: No
  Sender: FDA-Public Use
  Company Number: US-LANNETT COMPANY, INC.-US-2019LAN001183

PATIENT
  Age: 34 Year
  Sex: Female

DRUGS (5)
  1. ZIDOVUDINE. [Suspect]
     Active Substance: ZIDOVUDINE
     Indication: PRODUCT USED FOR UNKNOWN INDICATION
     Dosage: 1 COURSE, BID; 3RD TRIMESTER; BEGUN AND ENDED WEEK 38 GESTATION
     Route: 042
  2. TENOFOVIR DISOPROXIL FUMARATE. [Suspect]
     Active Substance: TENOFOVIR DISOPROXIL FUMARATE
     Indication: PRODUCT USED FOR UNKNOWN INDICATION
     Dosage: 1 COURSE, QD; 1ST TRIMESTER, WEEK 0 GESTATION
     Route: 048
  3. ZIDOVUDINE. [Suspect]
     Active Substance: ZIDOVUDINE
     Dosage: 2 COURSE, QD; 3RD TRIMESTER; BEGUN AND ENDED AT WEEK 38 GESTATION
     Route: 042
  4. LAMIVUDINE. [Suspect]
     Active Substance: LAMIVUDINE
     Indication: PRODUCT USED FOR UNKNOWN INDICATION
     Dosage: 1 COURSE, QD; 1ST TRIMESTER; WEEK 0 GESTATION
     Route: 048
  5. EFAVIRENZ. [Suspect]
     Active Substance: EFAVIRENZ
     Indication: PRODUCT USED FOR UNKNOWN INDICATION
     Dosage: 1 COURSE, QD; 1ST TRIMESTER, WEEK 0 GESTATION
     Route: 048

REACTIONS (2)
  - Maternal exposure during pregnancy [Unknown]
  - No adverse event [Unknown]
